FAERS Safety Report 24892824 (Version 1)
Quarter: 2025Q1

REPORT INFORMATION
  Report Type: Spontaneous
  Country: DE (occurrence: DE)
  Receive Date: 20250128
  Receipt Date: 20250128
  Transmission Date: 20250409
  Serious: Yes (Other)
  Sender: AUROBINDO
  Company Number: DE-JNJFOC-20101101846

PATIENT
  Age: 19 Year
  Sex: Male
  Weight: 70 kg

DRUGS (9)
  1. LAMOTRIGINE [Suspect]
     Active Substance: LAMOTRIGINE
     Indication: Ill-defined disorder
     Route: 048
     Dates: start: 20101107, end: 20101107
  2. ABILIFY [Suspect]
     Active Substance: ARIPIPRAZOLE
     Indication: Ill-defined disorder
     Route: 048
     Dates: start: 20101107, end: 20101107
  3. DIAZEPAM [Suspect]
     Active Substance: DIAZEPAM
     Indication: Ill-defined disorder
     Route: 048
     Dates: start: 20101107, end: 20101107
  4. CONCERTA [Suspect]
     Active Substance: METHYLPHENIDATE HYDROCHLORIDE
     Indication: Ill-defined disorder
     Route: 048
     Dates: start: 20101107, end: 20101107
  5. INVEGA [Suspect]
     Active Substance: PALIPERIDONE
     Indication: Ill-defined disorder
     Route: 048
     Dates: start: 20101107, end: 20101107
  6. MELPERONE HYDROCHLORIDE [Suspect]
     Active Substance: MELPERONE HYDROCHLORIDE
     Indication: Ill-defined disorder
     Route: 048
     Dates: start: 20101107, end: 20101107
  7. RITALIN [Suspect]
     Active Substance: METHYLPHENIDATE HYDROCHLORIDE
     Indication: Ill-defined disorder
     Route: 048
     Dates: start: 20101107, end: 20101107
  8. TRIMIPRAMINE MALEATE [Suspect]
     Active Substance: TRIMIPRAMINE MALEATE
     Indication: Ill-defined disorder
     Route: 048
     Dates: start: 20101107, end: 20101107
  9. SIMVASTATIN [Suspect]
     Active Substance: SIMVASTATIN
     Indication: Ill-defined disorder
     Route: 048
     Dates: start: 20101107, end: 20101107

REACTIONS (3)
  - Suicide attempt [Recovered/Resolved]
  - Intentional overdose [Recovered/Resolved]
  - Fatigue [Recovered/Resolved]

NARRATIVE: CASE EVENT DATE: 20101107
